FAERS Safety Report 9732458 (Version 1)
Quarter: 2013Q4

REPORT INFORMATION
  Report Type: Spontaneous
  Country: IT (occurrence: IT)
  Receive Date: 20131204
  Receipt Date: 20131204
  Transmission Date: 20140711
  Serious: Yes (Hospitalization)
  Sender: FDA-Public Use
  Company Number: PHHY2013IT137539

PATIENT
  Sex: Male

DRUGS (1)
  1. ACETYLSALICYLIC ACID [Suspect]
     Indication: RHINITIS
     Dosage: 300 MG, ONCE/SINGLE
     Route: 048
     Dates: start: 20131009, end: 20131009

REACTIONS (1)
  - Face oedema [Recovered/Resolved]
